FAERS Safety Report 7796853-X (Version None)
Quarter: 2011Q4

REPORT INFORMATION
  Report Type: 
  Country: None (occurrence: None)
  Receive Date: 20111005
  Receipt Date: 20110930
  Transmission Date: 20120403
  Serious: Yes (Other)
  Sender: FDA-Public Use
  Company Number: US-ABBOTT-11P-163-0851661-00

PATIENT
  Sex: Female

DRUGS (6)
  1. LORAZEPAM [Concomitant]
     Indication: ANXIETY
  2. PAROXETINE HCL [Concomitant]
     Indication: DEPRESSION
  3. CENTRUM [Concomitant]
     Indication: VITAMIN SUPPLEMENTATION
  4. VITAMIN D [Concomitant]
     Indication: PRODUCT USED FOR UNKNOWN INDICATION
  5. HUMIRA [Suspect]
     Indication: CROHN'S DISEASE
     Route: 058
     Dates: start: 20090701, end: 20110901
  6. ATENOLOL [Concomitant]
     Indication: CARDIAC FAILURE CONGESTIVE

REACTIONS (6)
  - MEMORY IMPAIRMENT [None]
  - CEREBROVASCULAR ACCIDENT [None]
  - SENSORY LOSS [None]
  - CARDIAC FAILURE CONGESTIVE [None]
  - PARAESTHESIA [None]
  - HYPOAESTHESIA [None]
